FAERS Safety Report 20589195 (Version 1)
Quarter: 2022Q1

REPORT INFORMATION
  Report Type: Report from Study
  Country: PL (occurrence: PL)
  Receive Date: 20220314
  Receipt Date: 20220314
  Transmission Date: 20220423
  Serious: Yes (Death)
  Sender: FDA-Public Use
  Company Number: PL-HORIZON THERAPEUTICS-HZN-2022-001434

PATIENT

DRUGS (5)
  1. UPLIZNA [Suspect]
     Active Substance: INEBILIZUMAB-CDON
     Indication: Neuromyelitis optica spectrum disorder
     Dosage: 300 MG, EVERY SIX MONTHS
     Route: 042
     Dates: start: 20150928
  2. UPLIZNA [Suspect]
     Active Substance: INEBILIZUMAB-CDON
     Dosage: LAST ADMINISTRATION
     Route: 042
     Dates: start: 20211115
  3. BONVIVA [IBANDRONIC ACID] [Concomitant]
     Indication: Osteoporosis
     Dosage: 150 MG
     Route: 065
     Dates: start: 20190429
  4. PREGABALIN [Concomitant]
     Active Substance: PREGABALIN
     Indication: Neuralgia
     Dosage: 75 MG, BID
     Route: 048
     Dates: start: 20181120
  5. ZOMIREN [Concomitant]
     Indication: Sleep disorder
     Dosage: 0.5 MG, PRN
     Route: 048
     Dates: start: 20190110

REACTIONS (1)
  - COVID-19 [Fatal]
